FAERS Safety Report 11096335 (Version 1)
Quarter: 2015Q2

REPORT INFORMATION
  Report Type: Spontaneous
  Country: US (occurrence: US)
  Receive Date: 20150507
  Receipt Date: 20150507
  Transmission Date: 20150821
  Serious: No
  Sender: FDA-Public Use
  Company Number: US-BIOGENIDEC-2015BI059218

PATIENT
  Age: 71 Year
  Sex: Male

DRUGS (17)
  1. ARMOUR THYROID [Concomitant]
     Active Substance: THYROID, PORCINE\THYROID, UNSPECIFIED
  2. FISH OIL [Concomitant]
     Active Substance: FISH OIL
  3. GLUCOSAMINE 1500 COMPLEX [Concomitant]
  4. OXYBUTYNIN CHLORIDE. [Concomitant]
     Active Substance: OXYBUTYNIN CHLORIDE
  5. VIT B COMPLEX [Concomitant]
  6. VIT B 12 [Concomitant]
  7. MAGNESIUM [Concomitant]
     Active Substance: MAGNESIUM
  8. PROSIGHT [Concomitant]
  9. SELENIUM [Concomitant]
     Active Substance: SELENIUM
  10. VITAMIN E [Concomitant]
     Active Substance: .ALPHA.-TOCOPHEROL
  11. ZINC 15 [Concomitant]
  12. KRILL OIL PLUS [Concomitant]
  13. SAW PALMETTO [Concomitant]
     Active Substance: SAW PALMETTO
  14. PROBIOTIC [Concomitant]
     Active Substance: PROBIOTICS NOS
  15. VITAMIN C [Concomitant]
     Active Substance: ASCORBIC ACID
  16. TECFIDERA [Suspect]
     Active Substance: DIMETHYL FUMARATE
     Indication: MULTIPLE SCLEROSIS
     Route: 048
  17. CALCIUM [Concomitant]
     Active Substance: CALCIUM

REACTIONS (1)
  - Multiple sclerosis [Not Recovered/Not Resolved]
